FAERS Safety Report 5767618-5 (Version None)
Quarter: 2008Q2

REPORT INFORMATION
  Report Type: 
  Country: None (occurrence: None)
  Receive Date: 20080611
  Receipt Date: 20080611
  Transmission Date: 20081010
  Serious: Yes (Other)
  Sender: FDA-Public Use
  Company Number: None

PATIENT
  Age: 69 Year
  Sex: Female
  Weight: 56.246 kg

DRUGS (4)
  1. FOSAMAX [Suspect]
     Indication: OSTEOPENIA
     Dosage: WEEKLY
     Dates: start: 19980210, end: 20080406
  2. FOSAMAX [Suspect]
     Indication: OSTEOPOROSIS
     Dosage: WEEKLY
     Dates: start: 19980210, end: 20080406
  3. FOSAMAX [Suspect]
     Indication: OSTEOPENIA
     Dosage: WEEKLY
     Dates: start: 20080406, end: 20080406
  4. FOSAMAX [Suspect]
     Indication: OSTEOPOROSIS
     Dosage: WEEKLY
     Dates: start: 20080406, end: 20080406

REACTIONS (2)
  - HEART RATE IRREGULAR [None]
  - PALPITATIONS [None]
